FAERS Safety Report 9444481 (Version 4)
Quarter: 2014Q2

REPORT INFORMATION
  Report Type: Spontaneous
  Country: US (occurrence: US)
  Receive Date: 20130807
  Receipt Date: 20140416
  Transmission Date: 20141212
  Serious: Yes (Hospitalization)
  Sender: FDA-Public Use
  Company Number: US-BAYER-2013-094714

PATIENT
  Age: 26 Year
  Sex: Female
  Weight: 63.49 kg

DRUGS (3)
  1. MIRENA [Suspect]
     Indication: CONTRACEPTION
     Dosage: 20 MCG/24HR, CONT
     Route: 015
     Dates: start: 20080401, end: 20110825
  2. LANTUS [Concomitant]
     Indication: DIABETES MELLITUS
     Dosage: 35 U, UNK
     Route: 058
     Dates: start: 1996
  3. NOVOLOG [Concomitant]
     Indication: DIABETES MELLITUS
     Dosage: SLIDING SCALE

REACTIONS (6)
  - Uterine perforation [None]
  - Injury [None]
  - Pain [None]
  - Emotional distress [None]
  - Device issue [None]
  - Inappropriate schedule of drug administration [None]
